FAERS Safety Report 14918094 (Version 1)
Quarter: 2018Q2

REPORT INFORMATION
  Report Type: Spontaneous
  Country: US (occurrence: US)
  Receive Date: 20180521
  Receipt Date: 20180521
  Transmission Date: 20180711
  Serious: No
  Sender: FDA-Public Use
  Company Number: US-TEVA-796517ACC

PATIENT

DRUGS (1)
  1. MEXILETINE [Suspect]
     Active Substance: MEXILETINE

REACTIONS (1)
  - Drug screen false positive [Unknown]
